FAERS Safety Report 7273074-0 (Version None)
Quarter: 2011Q1

REPORT INFORMATION
  Report Type: 
  Country: None (occurrence: None)
  Receive Date: 20110203
  Receipt Date: 20101222
  Transmission Date: 20110831
  Serious: Yes (Life-Threatening, Other)
  Sender: FDA-Public Use
  Company Number: US-BAXTER-2010BH003369

PATIENT
  Age: 42 Year
  Sex: Male
  Weight: 90 kg

DRUGS (13)
  1. HEPARIN SODIUM INJECTION [Suspect]
     Route: 040
     Dates: start: 20080218, end: 20080218
  2. VANCOMYCIN [Concomitant]
     Indication: PRODUCT USED FOR UNKNOWN INDICATION
     Route: 065
  3. HEPARIN SODIUM INJECTION [Suspect]
     Indication: PULMONARY EMBOLISM
     Route: 040
     Dates: start: 20080213, end: 20080213
  4. ASPIRIN [Concomitant]
     Indication: PRODUCT USED FOR UNKNOWN INDICATION
     Route: 065
  5. SODIUM CHLORIDE [Concomitant]
     Indication: PRODUCT USED FOR UNKNOWN INDICATION
     Route: 042
  6. CEFTRIAXONE [Concomitant]
     Indication: PRODUCT USED FOR UNKNOWN INDICATION
     Route: 065
  7. ZOLPIDEM [Concomitant]
     Indication: PRODUCT USED FOR UNKNOWN INDICATION
     Route: 048
  8. HYDROXYZINE HYDROCHLORIDE [Concomitant]
     Indication: PRODUCT USED FOR UNKNOWN INDICATION
     Route: 048
  9. HEPARIN SODIUM 5,000 UNITS IN DEXTROSE 5% [Suspect]
     Indication: PULMONARY EMBOLISM
     Route: 042
     Dates: start: 20080213, end: 20080218
  10. 5% DEXTROSE INJECTION [Concomitant]
     Indication: PRODUCT USED FOR UNKNOWN INDICATION
     Route: 065
  11. ONDANSETRON [Concomitant]
     Indication: NAUSEA
     Route: 042
  12. PROTONIX [Concomitant]
     Indication: PRODUCT USED FOR UNKNOWN INDICATION
     Route: 042
  13. ACETAMINOPHEN W/ PROPOXYPHENE HCL [Concomitant]
     Indication: PAIN
     Route: 048

REACTIONS (12)
  - JOINT INJURY [None]
  - CHEST PAIN [None]
  - HEADACHE [None]
  - MALAISE [None]
  - SWELLING [None]
  - SHOCK [None]
  - RASH [None]
  - PRURITUS [None]
  - PAIN [None]
  - ERYTHEMA [None]
  - DYSPNOEA [None]
  - VIRAL INFECTION [None]
